FAERS Safety Report 5572323-4 (Version None)
Quarter: 2007Q4

REPORT INFORMATION
  Report Type: 
  Country: None (occurrence: None)
  Receive Date: 20071219
  Receipt Date: 20071217
  Transmission Date: 20080405
  Serious: Yes (Death)
  Sender: FDA-Public Use
  Company Number: TCI2007A06310

PATIENT
  Age: 49 Year
  Sex: Female

DRUGS (7)
  1. LEUPROLIDE ACETATE [Suspect]
     Indication: BREAST CANCER
     Dosage: 11.25 MG (11.25 MG, 1 IN 12 WK), SUBCUTANEOUS
     Route: 058
     Dates: start: 20061124, end: 20070802
  2. TAXOTERE [Concomitant]
  3. NAVELBINE (VINORELBINE DITARTRATE) (INJECTION) [Concomitant]
  4. TS 1(TS 1)(CAPSULES) [Concomitant]
  5. GLYCYRON (GLYCYRON [Concomitant]
  6. LASIX (FIIROSEMIDE) (TABLETS) [Concomitant]
  7. FEMARA (LETROZOLE) (TABLETS) [Concomitant]

REACTIONS (4)
  - BREAST CANCER FEMALE [None]
  - HEPATIC ATROPHY [None]
  - MALIGNANT NEOPLASM PROGRESSION [None]
  - METASTASES TO LIVER [None]
